FAERS Safety Report 5090007-6 (Version None)
Quarter: 2006Q3

REPORT INFORMATION
  Report Type: 
  Country: None (occurrence: None)
  Receive Date: 20060823
  Receipt Date: 20060810
  Transmission Date: 20061208
  Serious: Yes (Hospitalization, Other)
  Sender: FDA-Public Use
  Company Number: 2006089786

PATIENT
  Age: 47 Year
  Sex: Female
  Weight: 97.977 kg

DRUGS (25)
  1. GEODON [Suspect]
     Indication: SCHIZOAFFECTIVE DISORDER
     Dosage: 160 MG (160 MG, 1 IN 1D), UNKNOWN
     Dates: start: 20050210
  2. LIPITOR [Suspect]
     Indication: DRUG USE FOR UNKNOWN INDICATION
  3. ZYRTEC [Suspect]
     Indication: DRUG USE FOR UNKNOWN INDICATION
     Dosage: 10 MG (10 MG, 1 IN 1 D), UNKNOWN
     Dates: start: 20050629
  4. DETROL LA [Suspect]
     Indication: DRUG USE FOR UNKNOWN INDICATION
     Dosage: 4 MG (4 MG, 1 IN 1 D), UNKNOWN
     Dates: start: 20060221
  5. XANAX [Suspect]
     Indication: ANXIETY
     Dosage: 1 MG (0.5 MG, 2 IN 1 AS NECESSARY), UNKNOWN
     Dates: start: 20060417
  6. XANAX [Suspect]
     Indication: ANXIETY
     Dosage: 2 MG (1 MG, 2 IN 1 D), UNKNOWN
     Dates: start: 20060417
  7. PAXIL CR [Concomitant]
  8. AMBIEN [Concomitant]
  9. CLOZARIL [Concomitant]
  10. REMERON [Concomitant]
  11. ALL OTHER THERAPEUTIC PRODUCTS [Concomitant]
  12. LAMICTAL [Concomitant]
  13. COLACE                 (DOCUSATE SODIUM) [Concomitant]
  14. ADVAIR DISKUS 100/50 [Concomitant]
  15. PREVACID [Concomitant]
  16. ALBUTEROL [Concomitant]
  17. TAMOXIFEN CITRATE [Concomitant]
  18. MONTELUKAST                    (MONTELUKAST) [Concomitant]
  19. SENNA                     (SENNA) [Concomitant]
  20. CALCIUM WITH VITAMIN D [Concomitant]
  21. MULTIVITAMIN [Concomitant]
  22. ATROVENT [Concomitant]
  23. RELAFEN [Concomitant]
  24. ASPIRIN [Concomitant]
  25. VITAMIN E [Concomitant]

REACTIONS (8)
  - ABDOMINAL PAIN [None]
  - ANXIETY [None]
  - MALAISE [None]
  - NON-CARDIAC CHEST PAIN [None]
  - PALPITATIONS [None]
  - SUPRAVENTRICULAR TACHYCARDIA [None]
  - VENTRICULAR FIBRILLATION [None]
  - VENTRICULAR HYPERTROPHY [None]
